FAERS Safety Report 23690957 (Version 1)
Quarter: 2024Q2

REPORT INFORMATION
  Report Type: Spontaneous
  Country: FR (occurrence: FR)
  Receive Date: 20240401
  Receipt Date: 20240401
  Transmission Date: 20240716
  Serious: Yes (Other)
  Sender: FDA-Public Use
  Company Number: FR-AFSSAPS-PP2024000282

PATIENT
  Age: 53 Year
  Sex: Male

DRUGS (1)
  1. BISOPROLOL [Suspect]
     Active Substance: BISOPROLOL\BISOPROLOL FUMARATE
     Indication: Cardiovascular event prophylaxis
     Dosage: 5 MG/J
     Route: 048
     Dates: start: 20220601, end: 20220705

REACTIONS (1)
  - Multisystem inflammatory syndrome [Recovered/Resolved]

NARRATIVE: CASE EVENT DATE: 20230703
